FAERS Safety Report 9691410 (Version 2)
Quarter: 2014Q2

REPORT INFORMATION
  Report Type: Report from Study
  Country: CA (occurrence: CA)
  Receive Date: 20131115
  Receipt Date: 20140521
  Transmission Date: 20141212
  Serious: Yes (Other)
  Sender: FDA-Public Use
  Company Number: PHHY2013CA130731

PATIENT
  Sex: Female
  Weight: 73 kg

DRUGS (1)
  1. CLOZARIL [Suspect]
     Route: 048
     Dates: start: 19960819

REACTIONS (1)
  - Electrocardiogram abnormal [Unknown]
